FAERS Safety Report 11984841 (Version 1)
Quarter: 2016Q1

REPORT INFORMATION
  Report Type: Spontaneous
  Country: US (occurrence: US)
  Receive Date: 20160201
  Receipt Date: 20160201
  Transmission Date: 20160526
  Serious: No
  Sender: FDA-Public Use
  Company Number: US-BAUSCH-BL-2015-029020

PATIENT
  Age: 71 Year
  Sex: Female

DRUGS (4)
  1. LOTEMAX [Concomitant]
     Active Substance: LOTEPREDNOL ETABONATE
     Indication: CATARACT
     Dosage: INSTILLED IN THE RIGHT EYE
     Dates: start: 201511
  2. PROLENSA [Suspect]
     Active Substance: BROMFENAC SODIUM
     Indication: CATARACT OPERATION
     Route: 065
  3. BESIVANCE [Concomitant]
     Active Substance: BESIFLOXACIN
     Indication: CATARACT
     Dosage: INSTILLED IN THE RIGHT EYE
     Dates: start: 201511
  4. BRIMONIDINE [Concomitant]
     Active Substance: BRIMONIDINE TARTRATE
     Indication: GLAUCOMA
     Dosage: INSTILLED IN THE EYE

REACTIONS (1)
  - Eye irritation [Not Recovered/Not Resolved]
